FAERS Safety Report 6613132-4 (Version None)
Quarter: 2010Q1

REPORT INFORMATION
  Report Type: 
  Country: None (occurrence: None)
  Receive Date: 20100304
  Receipt Date: 20100223
  Transmission Date: 20100710
  Serious: Yes (Other)
  Sender: FDA-Public Use
  Company Number: CH-ASTRAZENECA-2010SE08063

PATIENT
  Sex: Male

DRUGS (8)
  1. SEROQUEL [Suspect]
     Indication: DEMENTIA
     Route: 048
  2. AMIODARONE HCL [Interacting]
     Route: 048
  3. SINTROM [Concomitant]
     Route: 048
  4. ASPIRIN [Concomitant]
     Route: 048
  5. BELOC ZOK [Concomitant]
     Route: 048
  6. TRIATEC [Concomitant]
     Route: 048
  7. ADALAT [Concomitant]
     Route: 048
  8. TOREM [Concomitant]
     Route: 048

REACTIONS (2)
  - DRUG INTERACTION [None]
  - SOMNOLENCE [None]
